FAERS Safety Report 8814777 (Version 4)
Quarter: 2013Q3

REPORT INFORMATION
  Report Type: Spontaneous
  Country: US (occurrence: US)
  Receive Date: 20120928
  Receipt Date: 20130805
  Transmission Date: 20140515
  Serious: Yes (Hospitalization, Disabling)
  Sender: FDA-Public Use
  Company Number: US-PFIZER INC-2012239648

PATIENT
  Age: 58 Year
  Sex: Male
  Weight: 132 kg

DRUGS (11)
  1. LIPITOR [Suspect]
     Indication: BLOOD CHOLESTEROL ABNORMAL
     Dosage: UNK
     Dates: start: 2002
  2. LIPITOR [Suspect]
     Indication: BLOOD CHOLESTEROL INCREASED
     Dosage: 80 MG, DAILY
  3. TRILIPIX [Suspect]
     Indication: BLOOD CHOLESTEROL ABNORMAL
     Dosage: 135 MG, DAILY
  4. NIASPAN [Suspect]
     Indication: BLOOD CHOLESTEROL ABNORMAL
     Dosage: 500 MG, DAILY
  5. LISINOPRIL [Concomitant]
     Indication: HYPERTENSION
     Dosage: 10 MG, DAILY
  6. LISINOPRIL [Concomitant]
     Dosage: 5 MG, DAILY
  7. LEVOTHYROXINE [Concomitant]
     Indication: THYROID DISORDER
     Dosage: 50 UG, DAILY
  8. METFORMIN [Concomitant]
     Indication: DIABETES MELLITUS
     Dosage: 1000 MG, TWO TIMES A DAY
  9. GLIMEPIRIDE [Concomitant]
     Indication: DIABETES MELLITUS
     Dosage: 4 MG, TWO TIMES A DAY
  10. HUMALOG [Concomitant]
     Indication: DIABETES MELLITUS
     Dosage: 70 UNITS IN MORNING, 40 UNITS IN AFTERNOON + 20 UNITS IN EVENING
  11. ADVIL [Concomitant]
     Dosage: UNK

REACTIONS (6)
  - Chest discomfort [Recovering/Resolving]
  - Arterial occlusive disease [Recovering/Resolving]
  - Foot fracture [Unknown]
  - Neuropathy peripheral [Unknown]
  - Flushing [Unknown]
  - Drug ineffective [Unknown]
